FAERS Safety Report 16234468 (Version 2)
Quarter: 2019Q3

REPORT INFORMATION
  Report Type: Spontaneous
  Country: LV (occurrence: LV)
  Receive Date: 20190424
  Receipt Date: 20190913
  Transmission Date: 20191004
  Serious: Yes (Other)
  Sender: FDA-Public Use
  Company Number: LV-MYLANLABS-2019M1038443

PATIENT
  Sex: Female

DRUGS (24)
  1. MAGNESIUM SULFATE. [Suspect]
     Active Substance: MAGNESIUM SULFATE
     Indication: ACUTE MYOCARDIAL INFARCTION
  2. DOBUTAMINE [Suspect]
     Active Substance: DOBUTAMINE HYDROCHLORIDE
     Indication: HAEMODYNAMIC INSTABILITY
     Dosage: UNK
     Route: 064
     Dates: start: 2010
  3. MORPHINE [Suspect]
     Active Substance: MORPHINE
     Indication: PULMONARY EMBOLISM
  4. LOW MOLECULAR WEIGHT HEPARIN [Suspect]
     Active Substance: UNSPECIFIED INGREDIENT
     Indication: ACUTE MYOCARDIAL INFARCTION
  5. LEVOSIMENDAN [Suspect]
     Active Substance: LEVOSIMENDAN
     Indication: HAEMODYNAMIC INSTABILITY
     Dosage: 0.1 MICROGRAM/KILOGRAM
     Route: 064
     Dates: start: 2010
  6. ASPIRIN                            /00002701/ [Suspect]
     Active Substance: ASPIRIN
     Dosage: 500 MILLIGRAM, SINGLE DOSE
     Route: 064
     Dates: start: 2010
  7. OXYGEN. [Suspect]
     Active Substance: OXYGEN
     Indication: PRODUCT USED FOR UNKNOWN INDICATION
     Dosage: SATURATED,
     Route: 064
     Dates: start: 2010
  8. MORPHINE [Suspect]
     Active Substance: MORPHINE
     Indication: ACUTE MYOCARDIAL INFARCTION
     Dosage: UNK
     Route: 064
     Dates: start: 2010
  9. FONDAPARINUX SODIUM. [Suspect]
     Active Substance: FONDAPARINUX SODIUM
     Indication: PRODUCT USED FOR UNKNOWN INDICATION
     Dosage: UNK
     Route: 064
     Dates: start: 2010
  10. METOPROLOL. [Suspect]
     Active Substance: METOPROLOL
     Indication: PULMONARY EMBOLISM
  11. POTASSIUM CHLORIDE. [Suspect]
     Active Substance: POTASSIUM CHLORIDE
     Indication: PULMONARY EMBOLISM
  12. MAGNESIUM SULFATE. [Suspect]
     Active Substance: MAGNESIUM SULFATE
     Indication: PULMONARY EMBOLISM
     Dosage: UNK
     Route: 064
     Dates: start: 2010
  13. ISOSORBIDE DINITRATE. [Suspect]
     Active Substance: ISOSORBIDE DINITRATE
     Indication: ACUTE MYOCARDIAL INFARCTION
     Dosage: UNK
     Route: 064
     Dates: start: 2010
  14. DOBUTAMINE [Suspect]
     Active Substance: DOBUTAMINE HYDROCHLORIDE
     Dosage: 5 MICROGRAM/KILOGRAM
     Route: 064
     Dates: start: 2010
  15. ASPIRIN                            /00002701/ [Suspect]
     Active Substance: ASPIRIN
     Indication: PRODUCT USED FOR UNKNOWN INDICATION
     Dosage: SINGLE DOSE
     Route: 064
  16. LOW MOLECULAR WEIGHT HEPARIN [Suspect]
     Active Substance: UNSPECIFIED INGREDIENT
     Indication: PULMONARY EMBOLISM
     Dosage: UNK
     Route: 064
     Dates: start: 2010
  17. POTASSIUM CHLORIDE. [Suspect]
     Active Substance: POTASSIUM CHLORIDE
     Indication: ACUTE MYOCARDIAL INFARCTION
     Dosage: 7.45 PERCENT
     Route: 064
     Dates: start: 2010
  18. HEPARIN [Suspect]
     Active Substance: HEPARIN SODIUM
     Indication: PRODUCT USED FOR UNKNOWN INDICATION
     Dosage: UNK, SINGLE DOSE 7000 DV
     Route: 064
     Dates: start: 2010
  19. VISIPAQUE [Suspect]
     Active Substance: IODIXANOL
     Indication: PRODUCT USED FOR UNKNOWN INDICATION
     Dosage: UNK, 320
     Route: 064
     Dates: start: 2010
  20. NORADRENALINE                      /00127501/ [Suspect]
     Active Substance: NOREPINEPHRINE
     Indication: HAEMODYNAMIC INSTABILITY
     Dosage: 0.12 MICROGRAM/KILOGRAM
     Route: 064
     Dates: start: 2010
  21. ISOSORBIDE DINITRATE. [Suspect]
     Active Substance: ISOSORBIDE DINITRATE
     Indication: PULMONARY EMBOLISM
  22. METOPROLOL. [Suspect]
     Active Substance: METOPROLOL
     Indication: ACUTE MYOCARDIAL INFARCTION
     Dosage: UNK
     Route: 064
     Dates: start: 2010
  23. INTEGRILIN [Suspect]
     Active Substance: EPTIFIBATIDE
     Indication: PRODUCT USED FOR UNKNOWN INDICATION
     Dosage: SINGLE DOSE
     Route: 064
  24. INTEGRILIN [Suspect]
     Active Substance: EPTIFIBATIDE
     Dosage: 180 MILLIGRAM, SINGLE DOSE
     Route: 064

REACTIONS (2)
  - Foetal exposure during pregnancy [Recovered/Resolved]
  - Apgar score low [Unknown]

NARRATIVE: CASE EVENT DATE: 2010
